FAERS Safety Report 6301933-1 (Version None)
Quarter: 2009Q3

REPORT INFORMATION
  Report Type: 
  Country: None (occurrence: None)
  Receive Date: 20090807
  Receipt Date: 20090730
  Transmission Date: 20100115
  Serious: Yes (Death, Hospitalization)
  Sender: FDA-Public Use
  Company Number: HU-AMGEN-UK261422

PATIENT
  Sex: Female

DRUGS (6)
  1. PANITUMUMAB [Suspect]
     Indication: SQUAMOUS CELL CARCINOMA
     Route: 042
     Dates: start: 20071218, end: 20071218
  2. MEGESTROL ACETATE [Concomitant]
     Route: 048
     Dates: start: 20071212, end: 20071227
  3. NUTRITIONAL AGENTS AND VITAMINS [Concomitant]
     Route: 048
     Dates: start: 20071212, end: 20071226
  4. FOLIC ACID [Concomitant]
     Route: 048
     Dates: start: 20071212, end: 20071227
  5. CYANOCOBALAMIN [Concomitant]
  6. METHYLPREDNISOLONE [Concomitant]
     Route: 042
     Dates: start: 20071218, end: 20071218

REACTIONS (2)
  - CARDIAC FAILURE [None]
  - ILIAC ARTERY EMBOLISM [None]
